FAERS Safety Report 10065048 (Version 1)
Quarter: 2014Q2

REPORT INFORMATION
  Report Type: Spontaneous
  Country: US (occurrence: None)
  Receive Date: 20140407
  Receipt Date: 20140407
  Transmission Date: 20141212
  Serious: Yes (Hospitalization)
  Sender: FDA-Public Use
  Company Number: None

PATIENT
  Age: 73 Year
  Sex: Male
  Weight: 81.8 kg

DRUGS (1)
  1. NAPROXEN [Suspect]
     Indication: PAIN
     Route: 048
     Dates: start: 20131011, end: 20131212

REACTIONS (10)
  - Gastric haemorrhage [None]
  - Flushing [None]
  - Hyperhidrosis [None]
  - Salivary hypersecretion [None]
  - Hypophagia [None]
  - Apnoea [None]
  - Dyspnoea exertional [None]
  - Tachycardia [None]
  - Hypotension [None]
  - Gastric ulcer [None]
